FAERS Safety Report 5135438-0 (Version None)
Quarter: 2006Q4

REPORT INFORMATION
  Report Type: 
  Country: None (occurrence: None)
  Receive Date: 20061026
  Receipt Date: 20061020
  Transmission Date: 20070319
  Serious: Yes (Other)
  Sender: FDA-Public Use
  Company Number: JP-GLAXOSMITHKLINE-B0443593A

PATIENT
  Sex: Female

DRUGS (4)
  1. ZEFIX [Suspect]
     Indication: ANTIVIRAL PROPHYLAXIS
     Dosage: 100MG PER DAY
     Route: 048
     Dates: start: 20060401, end: 20060601
  2. PROGRAF [Suspect]
     Indication: DRUG USE FOR UNKNOWN INDICATION
     Route: 065
  3. CELLCEPT [Suspect]
     Indication: DRUG USE FOR UNKNOWN INDICATION
     Route: 048
  4. HEPATITIS B IMMUNE GLOBULIN (HUMAN) [Concomitant]

REACTIONS (1)
  - THROMBOCYTOPENIA [None]
